FAERS Safety Report 10006339 (Version 1)
Quarter: 2014Q1

REPORT INFORMATION
  Report Type: Spontaneous
  Country: US (occurrence: US)
  Receive Date: 20140313
  Receipt Date: 20140313
  Transmission Date: 20141002
  Serious: Yes (Hospitalization)
  Sender: FDA-Public Use
  Company Number: US-BAYER-2014-037513

PATIENT
  Age: 32 Year
  Sex: Female
  Weight: 101.13 kg

DRUGS (6)
  1. YASMIN [Suspect]
  2. LORTAB [Concomitant]
  3. HYDROCODONE [Concomitant]
  4. ACETAMINOPHEN [Concomitant]
  5. RETAVASE [Concomitant]
  6. REOPRO [Concomitant]

REACTIONS (1)
  - Deep vein thrombosis [None]
